FAERS Safety Report 5805040-3 (Version None)
Quarter: 2008Q3

REPORT INFORMATION
  Report Type: 
  Country: None (occurrence: None)
  Receive Date: 20080709
  Receipt Date: 20080703
  Transmission Date: 20090109
  Serious: Yes (Death, Life-Threatening, Hospitalization, Other)
  Sender: FDA-Public Use
  Company Number: BR-BOEHRINGER INGELHEIM GMBH, GERMANY-2007-BP-26324BP

PATIENT
  Sex: Female
  Weight: 4 kg

DRUGS (10)
  1. VIRAMUNE [Suspect]
     Indication: VERTICAL INFECTION TRANSMISSION
     Route: 048
     Dates: start: 20070820, end: 20070826
  2. ZIDOVUDINE [Suspect]
     Indication: VERTICAL INFECTION TRANSMISSION
     Route: 048
     Dates: start: 20070820, end: 20070930
  3. CEPHALEXIN [Concomitant]
     Indication: IMPETIGO
     Route: 048
     Dates: start: 20070828, end: 20070908
  4. SULFAMETHOXAZOLE [Concomitant]
     Indication: PROPHYLAXIS
     Route: 048
     Dates: start: 20071212
  5. TRIMETHOPRIN [Concomitant]
     Indication: PROPHYLAXIS
     Route: 048
     Dates: start: 20071212
  6. IRON [Concomitant]
     Indication: ANAEMIA PROPHYLAXIS
     Route: 048
     Dates: start: 20071212
  7. ASCORBIC ACID [Concomitant]
     Indication: ANAEMIA PROPHYLAXIS
     Route: 048
     Dates: start: 20070926
  8. NYSTATIN [Concomitant]
     Indication: GENITAL CANDIDIASIS
     Route: 061
     Dates: start: 20070926
  9. AMOXICILLIN [Concomitant]
     Indication: PNEUMONIA
     Route: 048
     Dates: start: 20080107, end: 20080114
  10. NYSTATIN [Concomitant]
     Indication: ORAL CANDIDIASIS
     Route: 048
     Dates: start: 20071212

REACTIONS (6)
  - ALANINE AMINOTRANSFERASE INCREASED [None]
  - ASPARTATE AMINOTRANSFERASE INCREASED [None]
  - MULTI-ORGAN FAILURE [None]
  - PNEUMONIA [None]
  - RESPIRATORY DISTRESS [None]
  - SEPSIS [None]
